FAERS Safety Report 10240981 (Version 1)
Quarter: 2014Q2

REPORT INFORMATION
  Report Type: Spontaneous
  Country: US (occurrence: US)
  Receive Date: 20140617
  Receipt Date: 20140617
  Transmission Date: 20141212
  Serious: No
  Sender: FDA-Public Use
  Company Number: US-TEVA-487575USA

PATIENT
  Age: 44 Year
  Sex: Female
  Weight: 127.12 kg

DRUGS (2)
  1. ACTIQ [Suspect]
     Indication: BACK PAIN
     Dosage: SIX PER DAY
  2. OXYCONTIN [Concomitant]
     Dosage: 160 MILLIGRAM DAILY;

REACTIONS (1)
  - Withdrawal syndrome [Not Recovered/Not Resolved]
